FAERS Safety Report 8616919-1 (Version None)
Quarter: 2012Q3

REPORT INFORMATION
  Report Type: 
  Country: None (occurrence: None)
  Receive Date: 20120823
  Receipt Date: 20120813
  Transmission Date: 20120928
  Serious: No
  Sender: FDA-Public Use
  Company Number: US-009507513-1208USA006368

PATIENT

DRUGS (1)
  1. VICTRELIS [Suspect]
     Route: 048

REACTIONS (9)
  - IRRITABILITY [None]
  - WEIGHT DECREASED [None]
  - RED BLOOD CELL COUNT DECREASED [None]
  - NERVOUSNESS [None]
  - MOOD SWINGS [None]
  - WHITE BLOOD CELL DISORDER [None]
  - DYSPNOEA [None]
  - FATIGUE [None]
  - ANXIETY [None]
